FAERS Safety Report 7606726-0 (Version None)
Quarter: 2011Q3

REPORT INFORMATION
  Report Type: 
  Country: None (occurrence: None)
  Receive Date: 20110713
  Receipt Date: 20110711
  Transmission Date: 20111222
  Serious: Yes (Congenital Anomaly)
  Sender: FDA-Public Use
  Company Number: AT-MERCK-1107AUT00004B1

PATIENT

DRUGS (4)
  1. ZIDOVUDINE [Concomitant]
     Route: 065
  2. PHENETHICILLIN POTASSIUM [Concomitant]
     Route: 065
  3. ISENTRESS [Suspect]
     Route: 065
  4. LAMIVUDINE AND ZIDOVUDINE [Concomitant]
     Route: 065

REACTIONS (2)
  - PLAGIOCEPHALY [None]
  - MATERNAL EXPOSURE DURING PREGNANCY [None]
